FAERS Safety Report 10631624 (Version 1)
Quarter: 2014Q4

REPORT INFORMATION
  Report Type: Spontaneous
  Country: US (occurrence: None)
  Receive Date: 20141203
  Receipt Date: 20141203
  Transmission Date: 20150529
  Serious: Yes (Disabling)
  Sender: FDA-Public Use
  Company Number: None

PATIENT
  Age: 65 Year
  Sex: Female
  Weight: 74.84 kg

DRUGS (2)
  1. LEVOFLOXACIN. [Suspect]
     Active Substance: LEVOFLOXACIN
     Indication: URINARY TRACT INFECTION
     Dosage: 7 ONCE DAILY TAKEN BY MOUTH
     Route: 048
     Dates: start: 20141102, end: 20141108
  2. LEVOFLOXACIN. [Suspect]
     Active Substance: LEVOFLOXACIN
     Indication: BRONCHITIS
     Dosage: 7 ONCE DAILY TAKEN BY MOUTH
     Route: 048
     Dates: start: 20141102, end: 20141108

REACTIONS (1)
  - Tendonitis [None]

NARRATIVE: CASE EVENT DATE: 20141107
